APPROVED DRUG PRODUCT: ZORTRESS
Active Ingredient: EVEROLIMUS
Strength: 1MG
Dosage Form/Route: TABLET;ORAL
Application: N021560 | Product #004 | TE Code: AB
Applicant: NOVARTIS PHARMACEUTICALS CORP
Approved: Aug 10, 2018 | RLD: Yes | RS: Yes | Type: RX